FAERS Safety Report 5076582-6 (Version None)
Quarter: 2006Q3

REPORT INFORMATION
  Report Type: 
  Country: None (occurrence: None)
  Receive Date: 20060807
  Receipt Date: 20060725
  Transmission Date: 20061208
  Serious: Yes (Death)
  Sender: FDA-Public Use
  Company Number: 2006082136

PATIENT
  Age: 59 Year
  Sex: Male

DRUGS (12)
  1. SUTENT [Suspect]
     Indication: GASTROINTESTINAL STROMAL TUMOUR
     Dosage: 50 MG 50 MG, CYCLIC), ORAL
     Route: 048
     Dates: start: 20050701, end: 20060618
  2. LANSOPRAZOLE [Concomitant]
  3. ALLOPURINOL [Concomitant]
  4. PYRIDOXINE                  (PYRIDOXINE) [Concomitant]
  5. CYCLIZINE      (CYCLIZINE) [Concomitant]
  6. AMLODIPINE [Concomitant]
  7. DEXAMETHASONE TAB [Concomitant]
  8. TEMAZEPAM [Concomitant]
  9. ORAMORPH SR [Concomitant]
  10. SALBUTAMOL     (SALBUTAMOL) [Concomitant]
  11. PULMICORT [Concomitant]
  12. BENDROFLUMETHIAZIDE            (BENDROFUMETHIAZIDE) [Concomitant]

REACTIONS (3)
  - ABDOMINAL PAIN [None]
  - GASTROINTESTINAL HAEMORRHAGE [None]
  - INTESTINAL ISCHAEMIA [None]
